FAERS Safety Report 21287642 (Version 3)
Quarter: 2022Q3

REPORT INFORMATION
  Report Type: Report from Study
  Country: CO (occurrence: CO)
  Receive Date: 20220902
  Receipt Date: 20220912
  Transmission Date: 20221027
  Serious: Yes (Hospitalization)
  Sender: FDA-Public Use
  Company Number: CO-ABBVIE-22K-036-4487691-00

PATIENT
  Sex: Male

DRUGS (2)
  1. VENCLEXTA [Suspect]
     Active Substance: VENETOCLAX
     Indication: Chronic lymphocytic leukaemia
     Route: 048
     Dates: start: 20211012, end: 20220825
  2. ESOMEPRAZOLE [Concomitant]
     Active Substance: ESOMEPRAZOLE
     Indication: Gastric pH decreased
     Route: 048
     Dates: start: 202110

REACTIONS (13)
  - Yellow skin [Recovering/Resolving]
  - Osteomyelitis [Recovering/Resolving]
  - Bronchial disorder [Recovering/Resolving]
  - Nausea [Recovering/Resolving]
  - Pyrexia [Recovering/Resolving]
  - COVID-19 [Recovering/Resolving]
  - Discouragement [Recovering/Resolving]
  - Nasal mucosal disorder [Recovering/Resolving]
  - Bronchitis [Recovering/Resolving]
  - Discomfort [Recovering/Resolving]
  - Hyperhidrosis [Recovering/Resolving]
  - Bone pain [Recovering/Resolving]
  - Decreased appetite [Recovering/Resolving]

NARRATIVE: CASE EVENT DATE: 20220101
